FAERS Safety Report 8623284-2 (Version None)
Quarter: 2012Q3

REPORT INFORMATION
  Report Type: 
  Country: None (occurrence: None)
  Receive Date: 20120824
  Receipt Date: 20120824
  Transmission Date: 20120928
  Serious: Yes (Other)
  Sender: FDA-Public Use
  Company Number: None

PATIENT
  Sex: Female
  Weight: 104.3273 kg

DRUGS (2)
  1. ENBREL [Suspect]
     Indication: PSORIASIS
     Dosage: 50MG, SQ EVERY WEEK
     Route: 058
  2. CLOBETASOL PROPIONATE [Concomitant]

REACTIONS (3)
  - TREATMENT FAILURE [None]
  - FATIGUE [None]
  - MALIGNANT MELANOMA [None]
